FAERS Safety Report 10136158 (Version 1)
Quarter: 2014Q2

REPORT INFORMATION
  Report Type: Report from Study
  Country: AT (occurrence: AT)
  Receive Date: 20140429
  Receipt Date: 20140429
  Transmission Date: 20141212
  Serious: Yes (Life-Threatening, Other)
  Sender: FDA-Public Use
  Company Number: AT-ROCHE-1378156

PATIENT
  Age: 77 Year
  Sex: Male
  Weight: 79 kg

DRUGS (4)
  1. PEG-INTERFERON ALFA 2A [Suspect]
     Indication: HEPATITIS C
     Route: 065
     Dates: start: 20080807
  2. PEG-INTERFERON ALFA 2A [Suspect]
     Route: 065
     Dates: start: 20080929
  3. RIBAVIRIN [Suspect]
     Indication: HEPATITIS C
     Route: 065
     Dates: start: 20080807
  4. RIBAVIRIN [Suspect]
     Route: 065
     Dates: start: 20080929

REACTIONS (8)
  - Prostatitis [Recovered/Resolved]
  - Cough [Unknown]
  - Pneumonia [Recovered/Resolved]
  - Fatigue [Recovered/Resolved]
  - Leukopenia [Recovered/Resolved]
  - Alopecia [Not Recovered/Not Resolved]
  - Agitation [Recovered/Resolved]
  - Aggression [Recovered/Resolved]
